FAERS Safety Report 7998491-2 (Version None)
Quarter: 2011Q4

REPORT INFORMATION
  Report Type: 
  Country: None (occurrence: None)
  Receive Date: 20111221
  Receipt Date: 20111212
  Transmission Date: 20120403
  Serious: Yes (Hospitalization, Other)
  Sender: FDA-Public Use
  Company Number: US-BAYER-2011-028435

PATIENT
  Age: 22 Year
  Sex: Female
  Weight: 141 kg

DRUGS (4)
  1. MULTI-VITAMINS [Concomitant]
  2. YAZ [Suspect]
     Dosage: UNK
     Route: 048
     Dates: start: 20080401, end: 20081001
  3. OVCON-35 [Concomitant]
  4. VICODIN [Concomitant]

REACTIONS (9)
  - CHOLECYSTITIS CHRONIC [None]
  - ANHEDONIA [None]
  - PAIN [None]
  - GENERAL PHYSICAL HEALTH DETERIORATION [None]
  - CHOLELITHIASIS [None]
  - ULCER [None]
  - INJURY [None]
  - EMOTIONAL DISTRESS [None]
  - ANXIETY [None]
